FAERS Safety Report 25261689 (Version 3)
Quarter: 2025Q2

REPORT INFORMATION
  Report Type: Spontaneous
  Country: US (occurrence: US)
  Receive Date: 20250502
  Receipt Date: 20250610
  Transmission Date: 20250717
  Serious: No
  Sender: AMGEN
  Company Number: US-AMGEN-USASP2025085442

PATIENT
  Age: 59 Year
  Sex: Male
  Weight: 79.365 kg

DRUGS (8)
  1. TAVNEOS [Suspect]
     Active Substance: AVACOPAN
     Indication: Granulomatosis with polyangiitis
     Dosage: 30 MILLIGRAM, BID
     Route: 048
     Dates: start: 202504, end: 20250428
  2. TAVNEOS [Suspect]
     Active Substance: AVACOPAN
     Dosage: 30 MILLIGRAM, BID WITH FOOD
     Route: 048
     Dates: start: 2025
  3. PREDNISONE [Suspect]
     Active Substance: PREDNISONE
     Indication: Rash
     Dosage: 15 MILLILITER, QD
     Route: 048
     Dates: start: 202504
  4. PREDNISONE [Suspect]
     Active Substance: PREDNISONE
     Dosage: 60 MILLIGRAM, QD
     Route: 048
  5. SOLU-MEDROL [Concomitant]
     Active Substance: METHYLPREDNISOLONE SODIUM SUCCINATE
     Route: 040
     Dates: start: 2025
  6. BACTRIM DS [Concomitant]
     Active Substance: SULFAMETHOXAZOLE\TRIMETHOPRIM
     Dates: start: 20250421
  7. LISINOPRIL [Concomitant]
     Active Substance: LISINOPRIL
     Dosage: 2.5 MILLIGRAM, QD
     Route: 048
     Dates: start: 20250421
  8. PANTOPRAZOLE [Concomitant]
     Active Substance: PANTOPRAZOLE
     Dosage: 2 DOSAGE FORM, QD
     Route: 048
     Dates: start: 20250421

REACTIONS (21)
  - Haemoglobin decreased [Unknown]
  - Eosinophil count increased [Recovering/Resolving]
  - Red blood cell count decreased [Unknown]
  - Faecal occult blood positive [Unknown]
  - Protein total abnormal [Unknown]
  - Urinary casts [Unknown]
  - Blood urea increased [Unknown]
  - Urine protein/creatinine ratio increased [Unknown]
  - Glomerular filtration rate decreased [Unknown]
  - Blood urea nitrogen/creatinine ratio increased [Unknown]
  - Blood potassium increased [Unknown]
  - Aspartate aminotransferase decreased [Unknown]
  - Protein total increased [Unknown]
  - Red blood cell sedimentation rate increased [Unknown]
  - Haematocrit decreased [Unknown]
  - Neutrophil count increased [Unknown]
  - Lymphocyte count decreased [Unknown]
  - Eosinophil count decreased [Unknown]
  - Platelet count decreased [Unknown]
  - Monocyte count decreased [Unknown]
  - Rash [Recovered/Resolved]

NARRATIVE: CASE EVENT DATE: 20250406
